FAERS Safety Report 5753709-1 (Version None)
Quarter: 2008Q2

REPORT INFORMATION
  Report Type: 
  Country: None (occurrence: None)
  Receive Date: 20080530
  Receipt Date: 20080528
  Transmission Date: 20081010
  Serious: Yes (Death, Hospitalization)
  Sender: FDA-Public Use
  Company Number: CH-SANOFI-SYNTHELABO-F01200800911

PATIENT
  Sex: Male

DRUGS (4)
  1. MORPHINE [Concomitant]
     Dates: start: 20080505
  2. GEMCITABINE [Suspect]
     Dosage: 1600 MG
     Route: 041
     Dates: start: 20080421, end: 20080421
  3. XELODA [Suspect]
     Dosage: DAYS 1 TO 14 2000 MG
     Route: 048
     Dates: start: 20080421, end: 20080428
  4. OXALIPLATIN [Suspect]
     Indication: PANCREATIC CARCINOMA METASTATIC
     Dosage: 200 MG
     Route: 041
     Dates: start: 20080421, end: 20080421

REACTIONS (1)
  - DISEASE PROGRESSION [None]
